FAERS Safety Report 7649588-8 (Version None)
Quarter: 2011Q3

REPORT INFORMATION
  Report Type: 
  Country: None (occurrence: None)
  Receive Date: 20110802
  Receipt Date: 20110721
  Transmission Date: 20111222
  Serious: Yes (Hospitalization)
  Sender: FDA-Public Use
  Company Number: US-JNJFOC-20110407254

PATIENT
  Sex: Male
  Weight: 108.86 kg

DRUGS (11)
  1. REMICADE [Suspect]
     Indication: COLITIS ULCERATIVE
     Route: 042
     Dates: start: 20110201
  2. VALIUM [Concomitant]
     Indication: SLEEP DISORDER THERAPY
     Route: 048
     Dates: start: 20100101
  3. BENADRYL [Concomitant]
     Indication: PREMEDICATION
  4. PREDNISONE [Concomitant]
     Indication: INFLAMMATION
     Route: 048
  5. VALIUM [Concomitant]
     Indication: STRESS
     Route: 048
     Dates: start: 20100101
  6. AMBIEN [Concomitant]
     Indication: SLEEP DISORDER THERAPY
     Dosage: DAILY BEDTIME
     Route: 048
     Dates: start: 20090101
  7. REMICADE [Suspect]
     Route: 042
     Dates: start: 20110401
  8. REMICADE [Suspect]
     Route: 042
     Dates: start: 20110103
  9. TYLENOL-500 [Concomitant]
     Indication: PREMEDICATION
  10. ASACOL [Concomitant]
     Indication: COLITIS ULCERATIVE
     Route: 048
     Dates: start: 20050101
  11. MERCAPTOPURINE [Concomitant]
     Indication: COLITIS ULCERATIVE
     Dosage: DAILY
     Route: 048
     Dates: start: 20060101

REACTIONS (6)
  - COLITIS ULCERATIVE [None]
  - DRUG INEFFECTIVE [None]
  - INFUSION RELATED REACTION [None]
  - SINUS CONGESTION [None]
  - FLUSHING [None]
  - HYPERSENSITIVITY [None]
